FAERS Safety Report 16347034 (Version 1)
Quarter: 2019Q2

REPORT INFORMATION
  Report Type: Spontaneous
  Country: US (occurrence: US)
  Receive Date: 20190523
  Receipt Date: 20190523
  Transmission Date: 20190711
  Serious: No
  Sender: FDA-Public Use
  Company Number: US-TARO-2018TAR00792

PATIENT
  Age: 80 Year
  Sex: Female
  Weight: 55.33 kg

DRUGS (4)
  1. AMMONIUM LACTATE CREAM (BASE) 12% [Suspect]
     Active Substance: AMMONIUM LACTATE
     Indication: DRY SKIN
     Dosage: UNK UNK, 2X/DAY
     Route: 061
     Dates: start: 201810, end: 20181025
  2. UNSPECIFIED BLOOD PRESSURE MEDICATION [Concomitant]
     Active Substance: UNSPECIFIED INGREDIENT
  3. AMMONIUM LACTATE CREAM (BASE) 12% [Suspect]
     Active Substance: AMMONIUM LACTATE
     Indication: PRURITUS
  4. UNSPECIFIED OTHER MEDICATIONS [Concomitant]
     Active Substance: UNSPECIFIED INGREDIENT

REACTIONS (2)
  - Application site rash [Not Recovered/Not Resolved]
  - Application site irritation [Not Recovered/Not Resolved]

NARRATIVE: CASE EVENT DATE: 20181025
